FAERS Safety Report 5662508-0 (Version None)
Quarter: 2008Q1

REPORT INFORMATION
  Report Type: 
  Country: None (occurrence: None)
  Receive Date: 20080313
  Receipt Date: 20080306
  Transmission Date: 20080703
  Serious: Yes (Other)
  Sender: FDA-Public Use
  Company Number: US-JNJFOC-20080302151

PATIENT
  Age: 53 Year
  Sex: Female

DRUGS (1)
  1. HALDOL [Suspect]
     Indication: MENTAL DISORDER

REACTIONS (2)
  - SOMNOLENCE [None]
  - WEIGHT INCREASED [None]
